FAERS Safety Report 9986841 (Version 1)
Quarter: 2014Q1

REPORT INFORMATION
  Report Type: Report from Study
  Country: US (occurrence: US)
  Receive Date: 20140307
  Receipt Date: 20140307
  Transmission Date: 20141002
  Serious: No
  Sender: FDA-Public Use
  Company Number: US-ABBVIE-13P-163-1080628-00

PATIENT
  Age: 60 Year
  Sex: Female

DRUGS (1)
  1. HUMIRA [Suspect]
     Indication: PSORIASIS
     Dates: start: 201010

REACTIONS (4)
  - Pyrexia [Recovered/Resolved]
  - Sinusitis [Recovered/Resolved]
  - Pyrexia [Recovered/Resolved]
  - Sinusitis [Recovered/Resolved]
